FAERS Safety Report 9382810 (Version 2)
Quarter: 2013Q3

REPORT INFORMATION
  Report Type: Spontaneous
  Country: FR (occurrence: FR)
  Receive Date: 20130703
  Receipt Date: 20130726
  Transmission Date: 20140515
  Serious: Yes (Hospitalization, Other)
  Sender: FDA-Public Use
  Company Number: FR-B.I. PHARMACEUTICALS,INC./RIDGEFIELD-2013-FF-01793FF

PATIENT
  Age: 63 Year
  Sex: Male

DRUGS (11)
  1. PRADAXA [Suspect]
     Indication: ATRIAL FIBRILLATION
     Dosage: 220 MG
     Route: 048
     Dates: start: 20130221, end: 20130608
  2. FLUVASTATINE [Concomitant]
  3. CANDESARTAN [Concomitant]
  4. KARDEGIC [Concomitant]
  5. UMULINE [Concomitant]
  6. BISOPROLOL [Concomitant]
  7. ACARBOSE [Concomitant]
  8. AMLODIPINE [Concomitant]
  9. ALLOPURINOL [Concomitant]
  10. FUROSEMIDE [Concomitant]
  11. ERYTHROPOIETIN [Concomitant]
     Indication: ANAEMIA

REACTIONS (12)
  - Circulatory collapse [Recovered/Resolved]
  - Shock haemorrhagic [Recovered/Resolved]
  - Melaena [Recovered/Resolved]
  - Haemoglobin decreased [Recovered/Resolved]
  - Renal failure [Not Recovered/Not Resolved]
  - Gastric ulcer [Unknown]
  - Hypotension [Recovered/Resolved]
  - Cardiovascular disorder [Recovered/Resolved]
  - Cardiac failure [Unknown]
  - Dehydration [Unknown]
  - Fall [Unknown]
  - Erythropoiesis abnormal [Unknown]
